FAERS Safety Report 22336345 (Version 3)
Quarter: 2024Q3

REPORT INFORMATION
  Report Type: Report from Study
  Country: DE (occurrence: DE)
  Receive Date: 20230518
  Receipt Date: 20240806
  Transmission Date: 20241016
  Serious: No
  Sender: ROCHE
  Company Number: DE-ROCHE-2811672

PATIENT
  Age: 51 Year
  Sex: Female

DRUGS (15)
  1. OCREVUS [Suspect]
     Active Substance: OCRELIZUMAB
     Indication: Secondary progressive multiple sclerosis
     Dosage: SUBSEQUENT DOSE ON 17/FEB/2020, 600 MG 214 DAYS FIRST INITIAL DOSE
     Route: 042
     Dates: start: 20201207
  2. OCREVUS [Suspect]
     Active Substance: OCRELIZUMAB
     Dosage: SECOND INITIAL OCREVUS INFUSION
     Route: 042
     Dates: start: 20201221
  3. OCREVUS [Suspect]
     Active Substance: OCRELIZUMAB
     Route: 042
     Dates: start: 20210707
  4. OCREVUS [Suspect]
     Active Substance: OCRELIZUMAB
     Route: 042
     Dates: start: 20220816, end: 20220816
  5. BACLOFEN [Concomitant]
     Active Substance: BACLOFEN
     Dosage: 1-1-1
  6. DALFAMPRIDINE [Concomitant]
     Active Substance: DALFAMPRIDINE
     Dosage: 0-0-1
  7. COMIRNATY [Concomitant]
     Indication: COVID-19 prophylaxis
     Dosage: SECOND VACCINE: 10/JUN/2021
     Dates: start: 20210429
  8. BOTOX [Concomitant]
     Active Substance: ONABOTULINUMTOXINA
     Indication: Bladder disorder
  9. GABAPENTIN [Concomitant]
     Active Substance: GABAPENTIN
  10. AMOXICILLIN [Concomitant]
     Active Substance: AMOXICILLIN
  11. CLARITHROMYCIN [Concomitant]
     Active Substance: CLARITHROMYCIN
  12. PANTOPRAZOLE [Concomitant]
     Active Substance: PANTOPRAZOLE
  13. IMODIUM [Concomitant]
     Active Substance: LOPERAMIDE HYDROCHLORIDE
  14. Angocin [Concomitant]
  15. DEMANNOSE [Concomitant]
     Active Substance: DEMANNOSE

REACTIONS (10)
  - Bone pain [Recovered/Resolved]
  - Off label use [Unknown]
  - Arthralgia [Recovered/Resolved]
  - Fall [Unknown]
  - Asthenia [Recovered/Resolved]
  - Urinary tract infection [Recovered/Resolved]
  - Helicobacter gastritis [Recovered/Resolved]
  - Gait disturbance [Not Recovered/Not Resolved]
  - C-reactive protein increased [Recovering/Resolving]
  - Fatigue [Recovered/Resolved]

NARRATIVE: CASE EVENT DATE: 20201207
